FAERS Safety Report 21175764 (Version 3)
Quarter: 2022Q3

REPORT INFORMATION
  Report Type: Other
  Country: CA (occurrence: None)
  Receive Date: 20220805
  Receipt Date: 20220920
  Transmission Date: 20221027
  Serious: Yes (Other)
  Sender: FDA-Public Use
  Company Number: CA-ROCHE-3149345

PATIENT
  Age: 56 Year
  Sex: Female

DRUGS (2)
  1. OCREVUS [Suspect]
     Active Substance: OCRELIZUMAB
     Indication: Relapsing-remitting multiple sclerosis
     Dosage: THEN 600 MG EVERY 6 MONTH
     Route: 042
     Dates: start: 20190905
  2. COVID 19 VACCINE (UNK INGREDIENTS) [Concomitant]
     Dosage: 4TH DOSE, BEGINNING OF JUNE.

REACTIONS (2)
  - COVID-19 [Unknown]
  - Breast mass [Not Recovered/Not Resolved]

NARRATIVE: CASE EVENT DATE: 20220722
